FAERS Safety Report 21064935 (Version 11)
Quarter: 2023Q1

REPORT INFORMATION
  Report Type: Report from Study
  Country: CN (occurrence: CN)
  Receive Date: 20220711
  Receipt Date: 20230103
  Transmission Date: 20230418
  Serious: Yes (Life-Threatening, Hospitalization, Other)
  Sender: FDA-Public Use
  Company Number: CN-EVEREST MEDICINES II (HK) LIMITED-20220601220

PATIENT
  Age: 41 Year
  Sex: Female
  Weight: 53 kg

DRUGS (31)
  1. SACITUZUMAB GOVITECAN [Suspect]
     Active Substance: SACITUZUMAB GOVITECAN
     Indication: Neoplasm
     Dosage: 10 MG/KG, DAYS 1 AND 8 OF A 21 DAY CYCLE
     Route: 042
     Dates: start: 20220622, end: 20220803
  2. FERROUS SUCCINATE [Concomitant]
     Active Substance: FERROUS SUCCINATE
     Indication: Anaemia
     Dosage: 0.2 G, BID
     Dates: start: 20220616, end: 20220701
  3. FERROUS SUCCINATE [Concomitant]
     Active Substance: FERROUS SUCCINATE
     Indication: Anaemia
     Dosage: 0.2 G, BID
     Dates: start: 20220709, end: 20220718
  4. CIMETIDINE [Concomitant]
     Active Substance: CIMETIDINE
     Indication: Prophylaxis of nausea and vomiting
     Dosage: 0.2 G
     Dates: start: 20220622, end: 20220622
  5. CIMETIDINE [Concomitant]
     Active Substance: CIMETIDINE
     Dosage: 0.2 G
     Dates: start: 20220629, end: 20220629
  6. DEXAMETHASONE [Concomitant]
     Active Substance: DEXAMETHASONE
     Indication: Prophylaxis
     Dosage: 10 MG
     Dates: start: 20220622, end: 20220622
  7. DEXAMETHASONE [Concomitant]
     Active Substance: DEXAMETHASONE
     Indication: Infusion related reaction
     Dosage: 10 MG
     Dates: start: 20220629, end: 20220629
  8. PROMETHAZINE HYDROCHLORIDE [Concomitant]
     Active Substance: PROMETHAZINE HYDROCHLORIDE
     Indication: Prophylaxis
     Dosage: 25 MG
     Dates: start: 20220622, end: 20220622
  9. PROMETHAZINE HYDROCHLORIDE [Concomitant]
     Active Substance: PROMETHAZINE HYDROCHLORIDE
     Indication: Prophylaxis
     Dosage: 25 MG
     Dates: start: 20220629, end: 20220629
  10. PROMETHAZINE HYDROCHLORIDE [Concomitant]
     Active Substance: PROMETHAZINE HYDROCHLORIDE
     Dosage: 5 MG, QD
     Route: 030
     Dates: start: 20220630, end: 20220630
  11. PALONOSETRON [Concomitant]
     Active Substance: PALONOSETRON
     Indication: Prophylaxis of nausea and vomiting
     Dosage: 0.25 MG
     Dates: start: 20220622, end: 20220622
  12. PALONOSETRON [Concomitant]
     Active Substance: PALONOSETRON
     Indication: Prophylaxis of nausea and vomiting
     Dosage: 0.25 MG
     Dates: start: 20220629, end: 20220629
  13. PALONOSETRON [Concomitant]
     Active Substance: PALONOSETRON
     Indication: Prophylaxis of nausea and vomiting
  14. DICLOFENAC [Concomitant]
     Active Substance: DICLOFENAC
     Indication: Prophylaxis
     Dosage: 25 MG
     Dates: start: 20220622, end: 20220622
  15. DICLOFENAC [Concomitant]
     Active Substance: DICLOFENAC
     Indication: Pyrexia
     Dosage: 25 MG
     Dates: start: 20220629, end: 20220629
  16. GLYCERIN\LECITHIN\MEDIUM-CHAIN TRIGLYCERIDES\SOYBEAN OIL [Concomitant]
     Active Substance: GLYCERIN\LECITHIN\MEDIUM-CHAIN TRIGLYCERIDES\SOYBEAN OIL
     Indication: Supplementation therapy
     Dosage: 250 ML, QD
     Route: 042
     Dates: start: 20220629, end: 20220629
  17. COMPOUND AMINO ACID INJECTION (14AA) [Concomitant]
     Indication: Supplementation therapy
     Dosage: 250 ML, QD
     Route: 042
     Dates: start: 20220629, end: 20220629
  18. COMPOUND AMINO ACID INJECTION (14AA) [Concomitant]
     Dosage: 250 ML, QID
     Dates: start: 20220706, end: 20220707
  19. DEXAMETHASONE SODIUM PHOSPHATE [Concomitant]
     Active Substance: DEXAMETHASONE SODIUM PHOSPHATE
     Indication: Prophylaxis
     Dosage: 5 MG, QD
     Route: 042
     Dates: start: 20220630, end: 20220630
  20. PEGYLATED RECOMBINANT HUMAN GRANULOCYTE COLONY-STIMULATING FACTOR [Concomitant]
     Indication: White blood cell count decreased
     Dosage: 6 MG, QD
     Route: 058
     Dates: start: 20220630, end: 20220630
  21. ERYTHROPOIETIN [Concomitant]
     Active Substance: ERYTHROPOIETIN
     Indication: Anaemia
     Dosage: 10000 IU QD
     Route: 058
     Dates: start: 20220702, end: 20220702
  22. ERYTHROPOIETIN [Concomitant]
     Active Substance: ERYTHROPOIETIN
     Dosage: 10000 IU
     Route: 058
     Dates: start: 20220705, end: 20220705
  23. ERYTHROPOIETIN [Concomitant]
     Active Substance: ERYTHROPOIETIN
     Dosage: UNK
     Dates: start: 20220707
  24. ERYTHROPOIETIN [Concomitant]
     Active Substance: ERYTHROPOIETIN
     Dosage: 10000 IU QD
     Route: 058
     Dates: start: 20220705, end: 20220705
  25. SHENG XUE XIAO BAN [Concomitant]
     Indication: Platelet count decreased
     Dosage: 1.35 UNK, TID
     Dates: start: 20220709, end: 20220718
  26. SHENG XUE XIAO BAN [Concomitant]
     Indication: Platelet count decreased
  27. HEMOCOAGULASE [Concomitant]
     Indication: Bladder injury
     Dosage: 2KU, INTRAVENOUS BOLUS, QD
     Dates: start: 20220629, end: 20220629
  28. ETHYLENEDIAMINE DIACETURATE [Concomitant]
     Indication: Bladder injury
     Dosage: 0.4G, QD
     Route: 042
  29. ETHYLENEDIAMINE DIACETURATE [Concomitant]
     Dosage: UNK
     Dates: start: 20220629, end: 20220630
  30. ETHAMSYLATE [Concomitant]
     Active Substance: ETHAMSYLATE
     Indication: Bladder injury
     Dosage: 1.5 G, QD
     Route: 042
     Dates: start: 20220629, end: 20220630
  31. AMINOMETHYLBENZOIC ACID [Concomitant]
     Active Substance: AMINOMETHYLBENZOIC ACID
     Indication: Bladder injury
     Dosage: 0.3 G, QD
     Route: 042
     Dates: start: 20220629, end: 20220629

REACTIONS (6)
  - Urinary bladder haemorrhage [Recovered/Resolved]
  - Condition aggravated [Recovered/Resolved]
  - White blood cell count decreased [Recovered/Resolved]
  - Neutrophil count decreased [Recovered/Resolved]
  - Diarrhoea [Recovered/Resolved]
  - Infection [Not Recovered/Not Resolved]

NARRATIVE: CASE EVENT DATE: 20220629
